FAERS Safety Report 11413759 (Version 2)
Quarter: 2015Q3

REPORT INFORMATION
  Report Type: Not Available
  Country: FR (occurrence: FR)
  Receive Date: 20150824
  Receipt Date: 20150917
  Transmission Date: 20151125
  Serious: Yes (Hospitalization, Other)
  Sender: FDA-Public Use
  Company Number: FR-PURDUE PHARMA-GBR-2015-0030393

PATIENT
  Age: 16 Year
  Sex: Male

DRUGS (1)
  1. OXYNORM [Suspect]
     Active Substance: OXYCODONE HYDROCHLORIDE
     Indication: PRODUCT USED FOR UNKNOWN INDICATION
     Route: 065

REACTIONS (5)
  - Drug abuse [Unknown]
  - Coma [Recovered/Resolved]
  - Acute respiratory distress syndrome [Recovered/Resolved]
  - Toxicity to various agents [Unknown]
  - Aspiration [Unknown]

NARRATIVE: CASE EVENT DATE: 20150717
